FAERS Safety Report 20543551 (Version 1)
Quarter: 2022Q1

REPORT INFORMATION
  Report Type: Spontaneous
  Country: JP (occurrence: JP)
  Receive Date: 20220302
  Receipt Date: 20220302
  Transmission Date: 20220424
  Serious: No
  Sender: FDA-Public Use
  Company Number: JP-MSD-2202JPN000763J

PATIENT
  Age: 67 Year
  Sex: Female

DRUGS (5)
  1. MOLNUPIRAVIR [Suspect]
     Active Substance: MOLNUPIRAVIR
     Indication: COVID-19 treatment
     Dosage: 200 MILLIGRAM, QID
     Route: 048
     Dates: start: 20220127, end: 20220129
  2. NU-LOTAN [Concomitant]
     Active Substance: LOSARTAN POTASSIUM
     Dosage: 50 MILLIGRAM, QD
  3. AMLODIPINE BESYLATE [Concomitant]
     Active Substance: AMLODIPINE BESYLATE
     Dosage: 5 MILLIGRAM, QD
     Route: 065
  4. EZETIMIBE [Concomitant]
     Active Substance: EZETIMIBE
     Dosage: 10 MILLIGRAM, QD
     Route: 065
  5. CALONAL [Concomitant]
     Active Substance: ACETAMINOPHEN
     Dosage: 200 MILLIGRAM
     Route: 065
     Dates: start: 20220127, end: 20220129

REACTIONS (3)
  - Rash [Recovered/Resolved]
  - Underdose [Unknown]
  - Product use issue [Unknown]

NARRATIVE: CASE EVENT DATE: 20220127
